FAERS Safety Report 4626703-1 (Version None)
Quarter: 2005Q2

REPORT INFORMATION
  Report Type: 
  Country: None (occurrence: None)
  Receive Date: 20050405
  Receipt Date: 20050324
  Transmission Date: 20051028
  Serious: Yes (Hospitalization)
  Sender: FDA-Public Use
  Company Number: JP-JNJFOC-20050300935

PATIENT
  Sex: Male
  Weight: 50 kg

DRUGS (19)
  1. REMICADE [Suspect]
     Route: 042
  2. REMICADE [Suspect]
     Route: 042
  3. REMICADE [Suspect]
     Route: 042
  4. REMICADE [Suspect]
     Route: 042
  5. REMICADE [Suspect]
     Indication: CROHN'S DISEASE
     Route: 042
  6. PREDNISONE TAB [Suspect]
     Indication: CROHN'S DISEASE
     Route: 049
  7. AZANIN [Suspect]
     Route: 049
  8. AZANIN [Suspect]
     Indication: CROHN'S DISEASE
     Route: 049
  9. PREDNISOLONE [Suspect]
     Route: 049
  10. PREDNISOLONE [Suspect]
     Route: 049
  11. PREDNISOLONE [Suspect]
     Route: 049
  12. PREDNISOLONE [Suspect]
     Route: 049
  13. PREDNISOLONE [Suspect]
     Route: 049
  14. PREDNISOLONE [Suspect]
     Indication: CROHN'S DISEASE
     Route: 049
  15. ENTERAL NUTRITION [Concomitant]
  16. PENTASA [Concomitant]
     Route: 049
  17. PENTASA [Concomitant]
     Indication: CROHN'S DISEASE
     Route: 049
  18. ANTEBATE UNGUENT [Concomitant]
     Route: 061
  19. NIZORAL [Concomitant]
     Route: 061

REACTIONS (1)
  - PULMONARY TUBERCULOSIS [None]
